FAERS Safety Report 12622927 (Version 1)
Quarter: 2016Q3

REPORT INFORMATION
  Report Type: Report from Study
  Country: US (occurrence: US)
  Receive Date: 20160804
  Receipt Date: 20160804
  Transmission Date: 20161109
  Serious: Yes (Hospitalization)
  Sender: FDA-Public Use
  Company Number: US-AMGEN-USASL2016098631

PATIENT
  Age: 77 Year
  Sex: Female

DRUGS (1)
  1. SENSIPAR [Suspect]
     Active Substance: CINACALCET HYDROCHLORIDE
     Indication: HYPERCALCAEMIA
     Dosage: 30 MG, 1/2 TABLET 3-4 TIMES/WEEK
     Route: 065
     Dates: start: 2016

REACTIONS (6)
  - Feeling abnormal [Unknown]
  - Asthenia [Not Recovered/Not Resolved]
  - Hallucination [Unknown]
  - Off label use [Unknown]
  - Pyrexia [Unknown]
  - Muscle spasms [Unknown]

NARRATIVE: CASE EVENT DATE: 20160720
